FAERS Safety Report 8682006 (Version 2)
Quarter: 2012Q4

REPORT INFORMATION
  Report Type: 
  Country: FR (occurrence: FR)
  Receive Date: 20120725
  Receipt Date: 20120914
  Transmission Date: 20130627
  Serious: Yes (Other)
  Sender: FDA-Public Use
  Company Number: FR-ASTRAZENECA-2012SE50022

PATIENT
  Age: 744 Month
  Sex: Female

DRUGS (3)
  1. ATACAND [Suspect]
     Route: 048
     Dates: start: 20120511, end: 20120614
  2. XYZALL [Concomitant]
     Route: 048
  3. SYMBICORT [Concomitant]
     Route: 055

REACTIONS (3)
  - Hepatitis [Recovering/Resolving]
  - Pyrexia [Recovered/Resolved]
  - Muscle contracture [Recovered/Resolved]
